FAERS Safety Report 7205332-X (Version None)
Quarter: 2010Q4

REPORT INFORMATION
  Report Type: 
  Country: None (occurrence: None)
  Receive Date: 20101231
  Receipt Date: 20101220
  Transmission Date: 20110411
  Serious: Yes (Life-Threatening, Hospitalization)
  Sender: FDA-Public Use
  Company Number: DE-CELGENEUS-062-C5013-10122334

PATIENT
  Age: 72 Year
  Sex: Male
  Weight: 63 kg

DRUGS (19)
  1. CC-5013 [Suspect]
     Indication: MULTIPLE MYELOMA
     Route: 048
     Dates: start: 20100429
  2. CC-5013 [Suspect]
     Route: 048
     Dates: start: 20101125, end: 20101215
  3. DEXAMETHASONE [Suspect]
     Indication: MULTIPLE MYELOMA
     Route: 065
     Dates: start: 20100429
  4. DEXAMETHASONE [Suspect]
     Route: 065
     Dates: start: 20101125, end: 20101216
  5. CANDESARTAN [Concomitant]
     Route: 048
     Dates: start: 20090912
  6. CALCIUM CARBONATE [Concomitant]
     Indication: OSTEOPOROSIS
     Route: 048
     Dates: start: 20100216
  7. MACROGOL [Concomitant]
     Indication: CONSTIPATION PROPHYLAXIS
     Route: 048
     Dates: start: 20100311
  8. HYDROMORPHONE HCL [Concomitant]
     Indication: BONE PAIN
     Route: 048
     Dates: start: 20100526
  9. HYDROMORPHONE HCL [Concomitant]
     Route: 048
     Dates: start: 20100408
  10. ZOLEDRONIC ACID [Concomitant]
     Indication: OSTEOPOROSIS
     Route: 051
     Dates: start: 20100408
  11. LACTULOSE [Concomitant]
     Indication: CONSTIPATION PROPHYLAXIS
     Route: 048
     Dates: start: 20100429
  12. PREGABALIN [Concomitant]
     Route: 048
     Dates: start: 20090526
  13. ENOXAPARIN SODIUM [Concomitant]
     Indication: THROMBOSIS PROPHYLAXIS
     Route: 058
     Dates: start: 20100506
  14. TORASEMID [Concomitant]
     Route: 048
     Dates: start: 20100825
  15. FRESUBIN [Concomitant]
     Route: 048
     Dates: start: 20100525
  16. ACYCLOVIR [Concomitant]
     Indication: ANTIVIRAL PROPHYLAXIS
     Route: 048
     Dates: start: 20100706
  17. ACETAMINOPHEN [Concomitant]
     Indication: BONE PAIN
     Route: 048
     Dates: start: 20100922
  18. AMPHOTERICIN B [Concomitant]
     Indication: ANTIFUNGAL PROPHYLAXIS
     Dosage: 1 PIPETTE
     Route: 048
     Dates: start: 20100802
  19. LINOLA [Concomitant]
     Indication: ERYTHEMA
     Route: 061
     Dates: start: 20101103

REACTIONS (1)
  - ACUTE ABDOMEN [None]
